APPROVED DRUG PRODUCT: MUTAMYCIN
Active Ingredient: MITOMYCIN
Strength: 40MG/VIAL **Federal Register determination that product was not discontinued or withdrawn for safety or effectiveness reasons**
Dosage Form/Route: INJECTABLE;INJECTION
Application: A062336 | Product #003
Applicant: BRISTOL MYERS CO
Approved: Mar 10, 1988 | RLD: No | RS: No | Type: DISCN